FAERS Safety Report 11739975 (Version 1)
Quarter: 2015Q4

REPORT INFORMATION
  Report Type: Spontaneous
  Country: US (occurrence: US)
  Receive Date: 20151113
  Receipt Date: 20151113
  Transmission Date: 20160304
  Serious: No
  Sender: FDA-Public Use
  Company Number: US-BAUSCH-BL-2015-014045

PATIENT
  Age: 25 Year
  Sex: Female
  Weight: 45.4 kg

DRUGS (3)
  1. DEMSER [Suspect]
     Active Substance: METYROSINE
     Indication: CHROMOSOMAL DELETION
     Route: 048
  2. DEMSER [Suspect]
     Active Substance: METYROSINE
     Route: 048
  3. ASPIRIN. [Concomitant]
     Active Substance: ASPIRIN
     Indication: PRODUCT USED FOR UNKNOWN INDICATION

REACTIONS (2)
  - Anxiety [Not Recovered/Not Resolved]
  - Drug ineffective [Not Recovered/Not Resolved]

NARRATIVE: CASE EVENT DATE: 20150424
